FAERS Safety Report 8513923-9 (Version None)
Quarter: 2012Q3

REPORT INFORMATION
  Report Type: 
  Country: None (occurrence: None)
  Receive Date: 20120717
  Receipt Date: 20120627
  Transmission Date: 20120928
  Serious: Yes (Other)
  Sender: FDA-Public Use
  Company Number: US-009507513-1207USA000860

PATIENT

DRUGS (2)
  1. FELBATOL [Suspect]
     Dosage: 3 DF, BID
     Route: 048
     Dates: start: 20080101
  2. FELBATOL [Suspect]
     Dosage: 1 DF, QD
     Route: 048

REACTIONS (2)
  - INTENTIONAL DRUG MISUSE [None]
  - CONVULSION [None]
